FAERS Safety Report 6711767-1 (Version None)
Quarter: 2010Q2

REPORT INFORMATION
  Report Type: 
  Country: None (occurrence: None)
  Receive Date: 20100505
  Receipt Date: 20100416
  Transmission Date: 20101027
  Serious: No
  Sender: FDA-Public Use
  Company Number: B0611845A

PATIENT
  Sex: Male

DRUGS (5)
  1. FLUTIDE DISKUS [Suspect]
     Indication: ASTHMA
     Dosage: 400MCG PER DAY
     Route: 055
     Dates: start: 20090224
  2. FLUTIDE [Suspect]
     Indication: ASTHMA
     Route: 055
     Dates: end: 20090223
  3. UNKNOWN [Concomitant]
     Route: 048
  4. PROCATEROL HCL [Concomitant]
     Dosage: 100MCG PER DAY
     Route: 048
  5. INTAL [Concomitant]
     Route: 065

REACTIONS (1)
  - ALOPECIA AREATA [None]
